FAERS Safety Report 9121039 (Version 1)
Quarter: 2013Q1

REPORT INFORMATION
  Report Type: Spontaneous
  Country: FR (occurrence: FR)
  Receive Date: 20130226
  Receipt Date: 20130226
  Transmission Date: 20140127
  Serious: Yes (Hospitalization)
  Sender: FDA-Public Use
  Company Number: FR-TEVA-387659ISR

PATIENT
  Age: 19 Year
  Sex: Female

DRUGS (1)
  1. LEELOO [Suspect]
     Indication: ORAL CONTRACEPTION
     Dosage: 1 DOSAGE FORMS DAILY; LEVONORGESTREL 0.1 MG/ ETHINYLESTRADIOL 0.02 MG
     Route: 048
     Dates: start: 201111, end: 201204

REACTIONS (2)
  - Pulmonary embolism [Recovered/Resolved]
  - Hypoperfusion [Recovered/Resolved]
